FAERS Safety Report 25552797 (Version 2)
Quarter: 2025Q3

REPORT INFORMATION
  Report Type: Spontaneous
  Country: CN (occurrence: CN)
  Receive Date: 20250715
  Receipt Date: 20250716
  Transmission Date: 20251021
  Serious: Yes (Other)
  Sender: Kenvue
  Company Number: CN-KENVUE-20250703836

PATIENT

DRUGS (5)
  1. MOTRIN INFANTS [Suspect]
     Active Substance: IBUPROFEN
     Indication: Patent ductus arteriosus
     Dosage: 0.5 MILLILITER, ONCE A DAY (10 MG/KG)
     Dates: start: 20250619, end: 20250619
  2. MOTRIN INFANTS [Suspect]
     Active Substance: IBUPROFEN
     Dosage: 0.25 MILLILITER, ONCE A DAY (5 MG/KG)
     Dates: start: 20250620, end: 20250620
  3. MOTRIN INFANTS [Suspect]
     Active Substance: IBUPROFEN
     Dosage: 0.25 MILLILITER, ONCE A DAY (5 MG/KG)
     Dates: start: 20250621, end: 20250621
  4. MOTRIN INFANTS [Suspect]
     Active Substance: IBUPROFEN
     Dosage: 0.56 MILLILITER, ONCE A DAY (10 MG/KG)
     Dates: start: 20250624, end: 20250624
  5. MOTRIN INFANTS [Suspect]
     Active Substance: IBUPROFEN
     Dosage: 0.28 MILLILITER, ONCE A DAY (5 MG/KG)
     Dates: start: 20250625, end: 20250625

REACTIONS (2)
  - Urine output decreased [Recovering/Resolving]
  - Off label use [Unknown]

NARRATIVE: CASE EVENT DATE: 20250619
